FAERS Safety Report 17070111 (Version 1)
Quarter: 2019Q4

REPORT INFORMATION
  Report Type: Spontaneous
  Country: SE (occurrence: SE)
  Receive Date: 20191125
  Receipt Date: 20191125
  Transmission Date: 20200122
  Serious: Yes (Hospitalization)
  Sender: FDA-Public Use
  Company Number: SE-ACCORD-162186

PATIENT
  Age: 30 Year
  Sex: Female

DRUGS (5)
  1. PARACETAMOL [Suspect]
     Active Substance: ACETAMINOPHEN
     Dates: start: 20191018, end: 20191018
  2. IKTORIVIL [Suspect]
     Active Substance: CLONAZEPAM
     Dosage: 10-15 PIECES
     Dates: start: 20191018, end: 20191018
  3. THERALEN [Suspect]
     Active Substance: TRIMEPRAZINE
     Dosage: 50-60 PIECES
     Dates: start: 20191018, end: 20191018
  4. IMOVANE [Suspect]
     Active Substance: ZOPICLONE
     Dates: start: 20191018, end: 20191018
  5. QUETIAPINE. [Suspect]
     Active Substance: QUETIAPINE
     Dates: start: 20191018, end: 20191018

REACTIONS (4)
  - Intentional overdose [Unknown]
  - Toxicity to various agents [Unknown]
  - Suicidal ideation [Unknown]
  - Agitation [Unknown]

NARRATIVE: CASE EVENT DATE: 20191018
